FAERS Safety Report 8847715 (Version 2)
Quarter: 2013Q2

REPORT INFORMATION
  Report Type: Spontaneous
  Country: US (occurrence: US)
  Receive Date: 20121018
  Receipt Date: 20130614
  Transmission Date: 20140414
  Serious: No
  Sender: FDA-Public Use
  Company Number: US-ASTRAZENECA-2012SE78026

PATIENT
  Age: 47 Year
  Sex: Male

DRUGS (2)
  1. NEXIUM [Suspect]
     Route: 048
  2. TUMS [Concomitant]

REACTIONS (8)
  - Anxiety [Unknown]
  - Anxiety [Unknown]
  - Stress [Unknown]
  - Abdominal pain upper [Unknown]
  - Malaise [Unknown]
  - Abdominal discomfort [Unknown]
  - Vomiting [Unknown]
  - Drug dose omission [Unknown]
